FAERS Safety Report 7271840-9 (Version None)
Quarter: 2011Q1

REPORT INFORMATION
  Report Type: 
  Country: None (occurrence: None)
  Receive Date: 20110203
  Receipt Date: 20110128
  Transmission Date: 20110831
  Serious: Yes (Other)
  Sender: FDA-Public Use
  Company Number: DE-SANOFI-AVENTIS-2011SA006225

PATIENT
  Sex: Female
  Weight: 62 kg

DRUGS (3)
  1. VITAMIN D [Concomitant]
     Dates: start: 20101201
  2. CORTISONE [Concomitant]
  3. QUENSYL [Suspect]
     Route: 048
     Dates: start: 20101210, end: 20101222

REACTIONS (8)
  - OEDEMA [None]
  - WEIGHT INCREASED [None]
  - VISCERAL CONGESTION [None]
  - SWELLING [None]
  - INDURATION [None]
  - BLOOD CREATININE INCREASED [None]
  - PAIN [None]
  - ACNE [None]
